FAERS Safety Report 22372206 (Version 1)
Quarter: 2023Q2

REPORT INFORMATION
  Report Type: Spontaneous
  Country: IT (occurrence: IT)
  Receive Date: 20230526
  Receipt Date: 20230526
  Transmission Date: 20230722
  Serious: Yes (Other)
  Sender: FDA-Public Use
  Company Number: IT-MYLANLABS-2023M1054872

PATIENT
  Age: 4 Decade
  Sex: Female

DRUGS (5)
  1. DULOXETINE [Suspect]
     Active Substance: DULOXETINE
     Indication: Back pain
     Dosage: 60 MILLIGRAM, QD
     Route: 065
     Dates: start: 20161004
  2. IBUPROFEN [Suspect]
     Active Substance: IBUPROFEN
     Indication: Back pain
     Dosage: 400 MILLIGRAM, PRN (AS NECESSARY)
     Route: 065
     Dates: start: 20161004
  3. ACETAMINOPHEN [Suspect]
     Active Substance: ACETAMINOPHEN
     Indication: Back pain
     Dosage: 1000 MILLIGRAM, PRN  (AS NECESSARY)
     Route: 048
  4. PALMIDROL [Suspect]
     Active Substance: PALMIDROL
     Indication: Back pain
     Dosage: 600 MILLIGRAM, QD
     Route: 065
     Dates: start: 20161004
  5. NALOXONE HYDROCHLORIDE\OXYCODONE HYDROCHLORIDE [Suspect]
     Active Substance: NALOXONE HYDROCHLORIDE\OXYCODONE HYDROCHLORIDE
     Indication: Back pain
     Dosage: UNK UNK, TID, 3 TIMES A DAY
     Route: 065
     Dates: start: 20161004

REACTIONS (3)
  - Therapy non-responder [Unknown]
  - Maternal exposure during pregnancy [Recovered/Resolved]
  - Normal newborn [Recovered/Resolved]
